FAERS Safety Report 8364589-2 (Version None)
Quarter: 2012Q2

REPORT INFORMATION
  Report Type: 
  Country: None (occurrence: None)
  Receive Date: 20120516
  Receipt Date: 20120308
  Transmission Date: 20120825
  Serious: Yes (Other)
  Sender: FDA-Public Use
  Company Number: US-ROCHE-793671

PATIENT
  Sex: Female
  Weight: 77.18 kg

DRUGS (2)
  1. ACCUTANE [Suspect]
     Route: 065
  2. ACCUTANE [Suspect]
     Indication: ACNE
     Dates: start: 19980101, end: 19990101

REACTIONS (2)
  - IRRITABLE BOWEL SYNDROME [None]
  - INFLAMMATORY BOWEL DISEASE [None]
